FAERS Safety Report 9159551 (Version 1)
Quarter: 2013Q1

REPORT INFORMATION
  Report Type: Spontaneous
  Country: US (occurrence: None)
  Receive Date: 20130312
  Receipt Date: 20130312
  Transmission Date: 20140127
  Serious: No
  Sender: FDA-Public Use
  Company Number: None

PATIENT
  Sex: Female

DRUGS (1)
  1. ZELBORAF [Suspect]
     Route: 048
     Dates: start: 20130214

REACTIONS (6)
  - Vomiting [None]
  - Arthralgia [None]
  - Myalgia [None]
  - Ocular hyperaemia [None]
  - Headache [None]
  - Bone pain [None]
